FAERS Safety Report 21110876 (Version 2)
Quarter: 2022Q3

REPORT INFORMATION
  Report Type: Report from Study
  Country: MX (occurrence: MX)
  Receive Date: 20220721
  Receipt Date: 20220723
  Transmission Date: 20221026
  Serious: Yes (Death)
  Sender: FDA-Public Use
  Company Number: MX-UCBSA-2022041434

PATIENT
  Sex: Male

DRUGS (1)
  1. ROTIGOTINE [Suspect]
     Active Substance: ROTIGOTINE
     Indication: Parkinson^s disease
     Dosage: UNK, ONCE DAILY (QD)
     Route: 062

REACTIONS (7)
  - Dementia Alzheimer^s type [Fatal]
  - Aggression [Recovered/Resolved]
  - Application site pruritus [Recovered/Resolved]
  - Dyschezia [Not Recovered/Not Resolved]
  - Gait inability [Not Recovered/Not Resolved]
  - Eating disorder [Not Recovered/Not Resolved]
  - Bedridden [Not Recovered/Not Resolved]

NARRATIVE: CASE EVENT DATE: 20210101
